FAERS Safety Report 20066225 (Version 1)
Quarter: 2021Q4

REPORT INFORMATION
  Report Type: Spontaneous
  Country: IT (occurrence: None)
  Receive Date: 20211114
  Receipt Date: 20211114
  Transmission Date: 20220303
  Serious: Yes (Hospitalization)
  Sender: FDA-Public Use
  Company Number: IT-SUPERNUS Pharmaceuticals, Inc.-SUP202111-002258

PATIENT
  Age: 38 Year
  Sex: Female

DRUGS (2)
  1. TOPIRAMATE [Suspect]
     Active Substance: TOPIRAMATE
     Indication: Migraine
  2. AJMALINE [Concomitant]
     Active Substance: AJMALINE
     Indication: Diagnostic procedure

REACTIONS (1)
  - Electrocardiogram abnormal [Recovered/Resolved]
